FAERS Safety Report 5323501-0 (Version None)
Quarter: 2007Q2

REPORT INFORMATION
  Report Type: 
  Country: None (occurrence: None)
  Receive Date: 20070508
  Receipt Date: 20070426
  Transmission Date: 20071010
  Serious: Yes (Hospitalization, Other)
  Sender: FDA-Public Use
  Company Number: CERZ-11550

PATIENT
  Sex: Female
  Weight: 51.8 kg

DRUGS (1)
  1. CEREZYME [Suspect]
     Indication: GAUCHER'S DISEASE
     Dosage: 4400 UNITS Q2WKS; IV
     Route: 042
     Dates: start: 20010308

REACTIONS (3)
  - LUNG NEOPLASM MALIGNANT [None]
  - LYMPHOMA [None]
  - NASOPHARYNGEAL CANCER [None]
